FAERS Safety Report 9510483 (Version 2)
Quarter: 2013Q3

REPORT INFORMATION
  Report Type: Spontaneous
  Country: US (occurrence: US)
  Receive Date: 20130909
  Receipt Date: 20130909
  Transmission Date: 20140515
  Serious: Yes (Death, Other)
  Sender: FDA-Public Use
  Company Number: US-GILEAD-2013-0082453

PATIENT
  Age: 53 Year
  Sex: Female

DRUGS (6)
  1. LETAIRIS [Suspect]
     Indication: PULMONARY HYPERTENSION
     Dates: start: 20081202
  2. LETAIRIS [Suspect]
     Indication: EXPOSURE TO TOXIC AGENT
  3. LETAIRIS [Suspect]
     Indication: RIGHT VENTRICULAR FAILURE
  4. VENTAVIS [Concomitant]
  5. REVATIO [Concomitant]
  6. COUMADIN                           /00014802/ [Concomitant]

REACTIONS (3)
  - Cardiac failure acute [Fatal]
  - Right ventricular failure [Fatal]
  - Multi-organ failure [Fatal]
